FAERS Safety Report 21497301 (Version 1)
Quarter: 2022Q4

REPORT INFORMATION
  Report Type: Spontaneous
  Country: US (occurrence: US)
  Receive Date: 20221023
  Receipt Date: 20221023
  Transmission Date: 20230113
  Serious: No
  Sender: FDA-Public Use
  Company Number: US-SA-SAC20221017002208

PATIENT
  Sex: Female

DRUGS (1)
  1. KEVZARA [Suspect]
     Active Substance: SARILUMAB
     Dosage: 12 MG, OTHER
     Route: 058
     Dates: start: 202101, end: 20221007

REACTIONS (2)
  - Drug ineffective [Unknown]
  - Product use issue [Unknown]
